FAERS Safety Report 8912359 (Version 1)
Quarter: 2012Q4

REPORT INFORMATION
  Report Type: 
  Country: AU (occurrence: AU)
  Receive Date: 20121116
  Receipt Date: 20121116
  Transmission Date: 20130627
  Serious: Yes (Other)
  Sender: FDA-Public Use
  Company Number: AU-RANBAXY-2012R1-62157

PATIENT
  Age: 60 Year
  Sex: Female
  Weight: 90 kg

DRUGS (2)
  1. MORPHINE [Suspect]
     Indication: ABDOMINAL PAIN
     Dosage: UNK
     Route: 048
  2. PETHIDINE [Concomitant]
     Indication: ABDOMINAL PAIN
     Dosage: 100mg twice /day
     Route: 051

REACTIONS (2)
  - Narcotic bowel syndrome [Not Recovered/Not Resolved]
  - Hypophagia [Unknown]
